FAERS Safety Report 9863838 (Version 3)
Quarter: 2014Q4

REPORT INFORMATION
  Report Type: Spontaneous
  Country: US (occurrence: US)
  Receive Date: 20140203
  Receipt Date: 20141021
  Transmission Date: 20150529
  Serious: Yes (Hospitalization, Other)
  Sender: FDA-Public Use
  Company Number: US-009507513-1402USA000060

PATIENT
  Sex: Female

DRUGS (1)
  1. NUVARING [Suspect]
     Active Substance: ETHINYL ESTRADIOL\ETONOGESTREL
     Indication: HORMONE REPLACEMENT THERAPY
     Dosage: UNK
     Route: 067
     Dates: end: 20080812

REACTIONS (12)
  - Diabetes mellitus [Unknown]
  - Off label use [Unknown]
  - Hypertension [Unknown]
  - Pulmonary embolism [Unknown]
  - Mammoplasty [Unknown]
  - Depression [Unknown]
  - Hepatic steatosis [Unknown]
  - Deep vein thrombosis [Unknown]
  - Restless legs syndrome [Unknown]
  - Endarterectomy [Unknown]
  - Cholecystectomy [Unknown]
  - Peripheral ischaemia [Unknown]

NARRATIVE: CASE EVENT DATE: 20080812
